FAERS Safety Report 19578636 (Version 3)
Quarter: 2021Q4

REPORT INFORMATION
  Report Type: Spontaneous
  Country: IT (occurrence: IT)
  Receive Date: 20210720
  Receipt Date: 20211214
  Transmission Date: 20220303
  Serious: Yes (Hospitalization, Other)
  Sender: FDA-Public Use
  Company Number: IT-CELLTRION INC.-2021IT009547

PATIENT

DRUGS (5)
  1. RITUXIMAB [Suspect]
     Active Substance: RITUXIMAB
     Indication: Diffuse large B-cell lymphoma
     Dosage: UNK, SIX (6) DOSES
     Route: 065
  2. THIOTEPA [Concomitant]
     Active Substance: THIOTEPA
     Indication: Diffuse large B-cell lymphoma
     Dosage: UNK
     Route: 065
  3. METHOTREXATE [Concomitant]
     Active Substance: METHOTREXATE
     Indication: Diffuse large B-cell lymphoma
     Dosage: UNK
     Route: 065
  4. IDARUBICIN [Concomitant]
     Active Substance: IDARUBICIN
     Indication: Diffuse large B-cell lymphoma
     Dosage: UNK
     Route: 065
  5. CYTARABINE [Concomitant]
     Active Substance: CYTARABINE
     Indication: Diffuse large B-cell lymphoma
     Dosage: UNK
     Route: 065

REACTIONS (4)
  - Symptom recurrence [Recovered/Resolved]
  - Immunodeficiency [Unknown]
  - COVID-19 pneumonia [Recovered/Resolved]
  - Post-acute COVID-19 syndrome [Recovered/Resolved]
